FAERS Safety Report 9206581 (Version 1)
Quarter: 2013Q1

REPORT INFORMATION
  Report Type: Spontaneous
  Country: US (occurrence: None)
  Receive Date: 20120731
  Receipt Date: 20120731
  Transmission Date: 20140127
  Serious: No
  Sender: FDA-Public Use
  Company Number: 2012MZ000327

PATIENT
  Age: 65 Year
  Sex: Female
  Weight: 67.13 kg

DRUGS (5)
  1. XEOMIN [Suspect]
     Indication: SKIN WRINKLING
     Dosage: UNITS
     Dates: start: 20120206, end: 20120206
  2. RADIESSE [Suspect]
     Dates: start: 20120209, end: 20120209
  3. SIMVASTATIN [Concomitant]
  4. IMITREX/01044801/ [Concomitant]
  5. TOPAMAX [Concomitant]

REACTIONS (3)
  - Injection site induration [None]
  - Injection site mass [None]
  - Off label use [None]
